FAERS Safety Report 6435076-3 (Version None)
Quarter: 2009Q4

REPORT INFORMATION
  Report Type: 
  Country: None (occurrence: None)
  Receive Date: 20091109
  Receipt Date: 20091109
  Transmission Date: 20100525
  Serious: Yes (Other)
  Sender: FDA-Public Use
  Company Number: None

PATIENT
  Age: 53 Year
  Sex: Female
  Weight: 104.3273 kg

DRUGS (1)
  1. ARMOUR THYROID 120 MG FORREST [Suspect]
     Indication: HYPOTHYROIDISM
     Dosage: 1 TABLET DAILY
     Dates: start: 20050401, end: 20090930

REACTIONS (2)
  - DRUG EFFECT DECREASED [None]
  - PRODUCT SUBSTITUTION ISSUE [None]
